FAERS Safety Report 15233296 (Version 2)
Quarter: 2021Q1

REPORT INFORMATION
  Report Type: Spontaneous
  Country: US (occurrence: US)
  Receive Date: 20180802
  Receipt Date: 20210325
  Transmission Date: 20210419
  Serious: Yes (Disabling)
  Sender: FDA-Public Use
  Company Number: US-TEVA-2018-US-936364

PATIENT
  Age: 64 Year
  Sex: Female
  Weight: 97.52 kg

DRUGS (25)
  1. MONTELUKAST [Concomitant]
     Active Substance: MONTELUKAST SODIUM
     Route: 065
     Dates: start: 2013, end: 2014
  2. KETOTIFEN [Concomitant]
     Active Substance: KETOTIFEN
     Route: 065
     Dates: start: 2013, end: 2014
  3. NEOSAR [Concomitant]
     Active Substance: CYCLOPHOSPHAMIDE
     Indication: BREAST CANCER FEMALE
     Dosage: DOSAGE: 150MG, FREQUENCY: EVERY THREE WEEKS, NO OF CYCLES: 04
     Route: 065
     Dates: start: 20141215, end: 20150217
  4. CYTOXAN [Concomitant]
     Active Substance: CYCLOPHOSPHAMIDE
     Indication: BREAST CANCER FEMALE
     Dosage: DOSAGE: 150MG, FREQUENCY: EVERY THREE WEEKS, NO OF CYCLES: 04
     Route: 065
     Dates: start: 20141215, end: 20150217
  5. AZITHROMYCIN ANHYDROUS. [Concomitant]
     Active Substance: AZITHROMYCIN ANHYDROUS
     Dosage: AS NEEDED
     Route: 065
  6. ESOMEPRAZOLE MAGNESIUM. [Concomitant]
     Active Substance: ESOMEPRAZOLE MAGNESIUM
     Route: 065
     Dates: start: 20150101
  7. CALCIUM/VITAMIN D [Concomitant]
     Active Substance: CALCIUM\VITAMIN D
     Route: 065
     Dates: start: 2012, end: 2013
  8. BUDESONIDE. [Concomitant]
     Active Substance: BUDESONIDE
     Route: 065
     Dates: start: 20150202
  9. FLUTICASONE. [Concomitant]
     Active Substance: FLUTICASONE
     Route: 065
     Dates: start: 2012, end: 2013
  10. ORLISTAT. [Concomitant]
     Active Substance: ORLISTAT
     Route: 065
     Dates: start: 2013, end: 2015
  11. NAPROXEN. [Concomitant]
     Active Substance: NAPROXEN
     Route: 065
     Dates: start: 2012, end: 2013
  12. POTASSIUM CHLORIDE. [Concomitant]
     Active Substance: POTASSIUM CHLORIDE
     Route: 065
     Dates: start: 2013
  13. AMLODIPINE BESYLATE. [Concomitant]
     Active Substance: AMLODIPINE BESYLATE
     Route: 065
     Dates: start: 2013, end: 2014
  14. DOCETAXEL. [Suspect]
     Active Substance: DOCETAXEL
     Indication: BREAST CANCER FEMALE
     Dosage: DOSAGE: 150MG, NO OF CYCLES: 04, FREQUENCY: EVERY THREE WEEKS
     Route: 065
     Dates: start: 20141215, end: 20150217
  15. TAXOTERE [Suspect]
     Active Substance: DOCETAXEL
     Indication: BREAST CANCER FEMALE
     Dosage: DOSAGE: 150MG, FREQUENCY: EVERY THREE WEEKS, NO OF CYCLES: 04
     Route: 065
     Dates: start: 20141215, end: 20150217
  16. VINORELBINE [Concomitant]
     Active Substance: VINORELBINE TARTRATE
     Indication: BREAST CANCER FEMALE
     Dosage: DOSAGE: 150MG, FREQUENCY: EVERY THREE WEEKS, NO OF CYCLES: 04
     Route: 065
     Dates: start: 20141215, end: 20150217
  17. ALBUTEROL. [Concomitant]
     Active Substance: ALBUTEROL
     Dosage: AS NEEDED
     Route: 065
     Dates: start: 20050101
  18. CARVEDILOL. [Concomitant]
     Active Substance: CARVEDILOL
     Route: 065
  19. FOSINOPRIL [Concomitant]
     Active Substance: FOSINOPRIL
     Route: 065
     Dates: start: 2014, end: 20150122
  20. TRAZODONE [Concomitant]
     Active Substance: TRAZODONE HYDROCHLORIDE
     Route: 065
  21. ANASTROZOLE. [Concomitant]
     Active Substance: ANASTROZOLE
     Route: 065
  22. ASPIRIN. [Concomitant]
     Active Substance: ASPIRIN
     Route: 065
     Dates: start: 20130101
  23. CITALOPAN HYDROBROMINE [Concomitant]
     Route: 065
     Dates: start: 2013, end: 2013
  24. TRIAMTERENE. [Concomitant]
     Active Substance: TRIAMTERENE
     Route: 065
     Dates: start: 2013
  25. MULTIVITAMIN [Concomitant]
     Active Substance: VITAMINS
     Route: 065
     Dates: start: 2013

REACTIONS (3)
  - Alopecia areata [Recovered/Resolved]
  - Hair colour changes [Recovered/Resolved]
  - Hair texture abnormal [Recovered/Resolved]

NARRATIVE: CASE EVENT DATE: 201412
